FAERS Safety Report 8523590-6 (Version None)
Quarter: 2012Q3

REPORT INFORMATION
  Report Type: 
  Country: None (occurrence: None)
  Receive Date: 20120720
  Receipt Date: 20101012
  Transmission Date: 20120928
  Serious: Yes (Hospitalization, Other)
  Sender: FDA-Public Use
  Company Number: US-BAYER-201015451NA

PATIENT
  Age: 34 Year
  Sex: Female
  Weight: 53.182 kg

DRUGS (12)
  1. MECLIZINE [Concomitant]
     Dosage: 25 MG, Q6WK, AS NEEDED
     Route: 048
  2. EFFEXOR XR [Concomitant]
     Dosage: 37.5 MG, UNK
     Route: 048
  3. PAXIL [Concomitant]
     Indication: DEPRESSION
     Dates: start: 20000101, end: 20100101
  4. PAXIL [Concomitant]
     Indication: ANXIETY
  5. YAZ [Suspect]
     Indication: PREMENSTRUAL SYNDROME
  6. NSAID'S [Concomitant]
  7. LEXAPRO [Concomitant]
     Indication: DEPRESSION
     Dates: start: 20000101, end: 20100101
  8. ANTIBIOTICS [Concomitant]
     Dates: start: 20000101, end: 20100101
  9. YAZ [Suspect]
     Indication: CONTRACEPTION
     Route: 048
     Dates: start: 20090212, end: 20090430
  10. YAZ [Suspect]
  11. LEXAPRO [Concomitant]
     Indication: ANXIETY
  12. HYDROCODONE BITARTRATE AND ACETAMINOPHEN [Concomitant]
     Dosage: 5MG/500 MG
     Route: 048

REACTIONS (6)
  - CHOLELITHIASIS [None]
  - NAUSEA [None]
  - CHOLECYSTITIS ACUTE [None]
  - ABDOMINAL PAIN [None]
  - BACK PAIN [None]
  - VOMITING [None]
